FAERS Safety Report 8069614 (Version 5)
Quarter: 2013Q4

REPORT INFORMATION
  Report Type: Report from Study
  Country: FR (occurrence: FR)
  Receive Date: 20110804
  Receipt Date: 20131021
  Transmission Date: 20140711
  Serious: Yes (Hospitalization)
  Sender: FDA-Public Use
  Company Number: FR-EISAI INC-E7389-01327-CLI-FR

PATIENT
  Age: 62 Year
  Sex: Female
  Weight: 66 kg

DRUGS (4)
  1. E7389 (BOLD) [Suspect]
     Indication: BREAST CANCER
     Route: 041
     Dates: start: 20110509
  2. ALDACTAZINE [Concomitant]
     Indication: HYPERTENSION
  3. TENSIMATE [Concomitant]
     Indication: HYPERTENSION
  4. LIPANTHYL [Concomitant]
     Indication: DYSLIPIDAEMIA

REACTIONS (2)
  - General physical health deterioration [Recovered/Resolved]
  - Pyrexia [Recovered/Resolved]
